FAERS Safety Report 4407041-9 (Version None)
Quarter: 2004Q3

REPORT INFORMATION
  Report Type: 
  Country: None (occurrence: None)
  Receive Date: 20040715
  Receipt Date: 20040707
  Transmission Date: 20050211
  Serious: Yes (Other)
  Sender: FDA-Public Use
  Company Number: AU-JNJFOC-20040604341

PATIENT
  Age: 3 Month
  Sex: Female

DRUGS (3)
  1. PROPULSID [Suspect]
     Indication: GASTROOESOPHAGEAL REFLUX DISEASE
     Dosage: DOSAGE: 1.5 MG PER KILOGRAM
  2. ZANTAC [Concomitant]
  3. MYLANTA (MYLANTA) [Concomitant]

REACTIONS (10)
  - ABDOMINAL PAIN UPPER [None]
  - ANDROGENS ABNORMAL [None]
  - BLOOD FOLLICLE STIMULATING HORMONE INCREASED [None]
  - CONDITION AGGRAVATED [None]
  - HYPERTRICHOSIS [None]
  - IRRITABILITY [None]
  - MARKEDLY REDUCED DIETARY INTAKE [None]
  - OVARIAN CYST [None]
  - PORPHYRIA [None]
  - SCREAMING [None]
